FAERS Safety Report 18530297 (Version 2)
Quarter: 2020Q4

REPORT INFORMATION
  Report Type: Spontaneous
  Country: SE (occurrence: SE)
  Receive Date: 20201121
  Receipt Date: 20201207
  Transmission Date: 20210114
  Serious: Yes (Hospitalization)
  Sender: FDA-Public Use
  Company Number: SE-009507513-2011SWE010828

PATIENT
  Age: 80 Year
  Sex: Male

DRUGS (1)
  1. PEMBROLIZUMAB. [Suspect]
     Active Substance: PEMBROLIZUMAB
     Dosage: RECEIVED TWO TREATMENTS
     Dates: start: 20200616

REACTIONS (2)
  - Mouth ulceration [Unknown]
  - Perioral dermatitis [Unknown]

NARRATIVE: CASE EVENT DATE: 2020
